FAERS Safety Report 24856820 (Version 2)
Quarter: 2025Q1

REPORT INFORMATION
  Report Type: Spontaneous
  Country: US (occurrence: US)
  Receive Date: 20250117
  Receipt Date: 20250321
  Transmission Date: 20250409
  Serious: No
  Sender: KALEO, INC.
  Company Number: US-Kaleo, Inc.-2024KL000059

PATIENT
  Age: 20 Month
  Sex: Male

DRUGS (1)
  1. AUVI-Q [Suspect]
     Active Substance: EPINEPHRINE
     Route: 003

REACTIONS (3)
  - No device malfunction [Recovered/Resolved]
  - No device malfunction [Recovered/Resolved]
  - Paraesthesia [Unknown]
